FAERS Safety Report 18579292 (Version 2)
Quarter: 2020Q4

REPORT INFORMATION
  Report Type: Spontaneous
  Country: US (occurrence: US)
  Receive Date: 20201204
  Receipt Date: 20201224
  Transmission Date: 20210114
  Serious: No
  Sender: FDA-Public Use
  Company Number: US-ASTRAZENECA-2020SF51857

PATIENT
  Sex: Male
  Weight: 72.1 kg

DRUGS (6)
  1. SYMBICORT [Suspect]
     Active Substance: BUDESONIDE\FORMOTEROL FUMARATE DIHYDRATE
     Indication: CHRONIC OBSTRUCTIVE PULMONARY DISEASE
     Dosage: 160/4.5 MCG, INHALATION, 2 PUFFS, TWICE DAILY
     Route: 055
     Dates: start: 2018
  2. BYSTOLIC [Concomitant]
     Active Substance: NEBIVOLOL HYDROCHLORIDE
     Indication: BLOOD PRESSURE MEASUREMENT
     Route: 048
  3. LEVALBUTEROL TARTRATE HFA [Concomitant]
     Active Substance: LEVALBUTEROL TARTRATE
     Indication: RESPIRATORY DISORDER
     Dosage: AS REQUIRED
     Route: 055
  4. AMLODIPINE BESYLATE. [Concomitant]
     Active Substance: AMLODIPINE BESYLATE
     Indication: BLOOD PRESSURE MEASUREMENT
     Route: 048
  5. ENALAPRIL MALEATE. [Concomitant]
     Active Substance: ENALAPRIL MALEATE
     Indication: BLOOD PRESSURE MEASUREMENT
     Route: 048
  6. SYMBICORT [Suspect]
     Active Substance: BUDESONIDE\FORMOTEROL FUMARATE DIHYDRATE
     Indication: EMPHYSEMA
     Dosage: 160/4.5 MCG, INHALATION, 2 PUFFS, TWICE DAILY
     Route: 055
     Dates: start: 2018

REACTIONS (9)
  - Drug dose omission by device [Unknown]
  - Intentional device misuse [Unknown]
  - Eye disorder [Unknown]
  - Dyspnoea [Unknown]
  - Drug delivery system issue [Unknown]
  - Laboratory test abnormal [Unknown]
  - Weight decreased [Unknown]
  - Incorrect dose administered [Unknown]
  - Incorrect dose administered by device [Unknown]
